FAERS Safety Report 20010197 (Version 7)
Quarter: 2023Q2

REPORT INFORMATION
  Report Type: Spontaneous
  Country: IN (occurrence: IN)
  Receive Date: 20211028
  Receipt Date: 20230410
  Transmission Date: 20230721
  Serious: Yes (Other)
  Sender: FDA-Public Use
  Company Number: IN-PFIZER INC-2019111772

PATIENT
  Age: 55 Year
  Sex: Female
  Weight: 80.8 kg

DRUGS (4)
  1. CRIZOTINIB [Suspect]
     Active Substance: CRIZOTINIB
     Indication: Non-small cell lung cancer metastatic
     Dosage: 250 MG, 2X/DAY
     Route: 048
     Dates: start: 20170216
  2. CRIZOTINIB [Suspect]
     Active Substance: CRIZOTINIB
     Dosage: 250 MG, 2X/DAY
     Route: 048
     Dates: start: 201702, end: 20180312
  3. CRIZOTINIB [Suspect]
     Active Substance: CRIZOTINIB
     Dosage: 250 MG, 1X/DAY
     Route: 048
     Dates: start: 20180328
  4. CRIZOTINIB [Suspect]
     Active Substance: CRIZOTINIB
     Dosage: 250 MG, 2X/DAY
     Route: 048

REACTIONS (34)
  - Pulmonary fibrosis [Unknown]
  - Electrocardiogram QT prolonged [Unknown]
  - Pruritus [Recovered/Resolved]
  - Nausea [Unknown]
  - Rash [Recovered/Resolved]
  - Skin lesion [Recovering/Resolving]
  - Cough [Recovered/Resolved]
  - Mouth ulceration [Unknown]
  - Mastication disorder [Unknown]
  - Atelectasis [Unknown]
  - Mucosal inflammation [Unknown]
  - Osteoarthritis [Unknown]
  - Neoplasm progression [Unknown]
  - Dyspnoea exertional [Unknown]
  - Blood alkaline phosphatase increased [Unknown]
  - Alanine aminotransferase increased [Unknown]
  - Gamma-glutamyltransferase increased [Unknown]
  - Blood pressure systolic increased [Unknown]
  - Pulmonary mass [Unknown]
  - Hepatic steatosis [Unknown]
  - Chest pain [Unknown]
  - Dyspnoea [Unknown]
  - Blood creatinine abnormal [Unknown]
  - Globulins increased [Unknown]
  - Goitre [Unknown]
  - Pleural effusion [Recovering/Resolving]
  - Pleural thickening [Unknown]
  - Hepatomegaly [Unknown]
  - Hyperchlorhydria [Unknown]
  - Off label use [Unknown]
  - Haemoglobin decreased [Unknown]
  - Blood urea increased [Unknown]
  - Neutrophil percentage increased [Unknown]
  - Lymphocyte percentage decreased [Unknown]

NARRATIVE: CASE EVENT DATE: 20171027
